FAERS Safety Report 8092359 (Version 6)
Quarter: 2014Q1

REPORT INFORMATION
  Report Type: Report from Study
  Country: US (occurrence: US)
  Receive Date: 20110816
  Receipt Date: 20140326
  Transmission Date: 20141002
  Serious: Yes (Death, Hospitalization, Other)
  Sender: FDA-Public Use
  Company Number: US-ALEXION-A201101211

PATIENT
  Age: 83 Year
  Sex: Male

DRUGS (1)
  1. SOLIRIS [Suspect]
     Indication: PAROXYSMAL NOCTURNAL HAEMOGLOBINURIA
     Dosage: 900 MG, UNK
     Route: 042

REACTIONS (8)
  - Acute myeloid leukaemia [Fatal]
  - Disease progression [Fatal]
  - Pneumonia aspiration [Recovering/Resolving]
  - Packed red blood cell transfusion [Recovered/Resolved]
  - Platelet transfusion [Unknown]
  - Thrombocytopenia [Fatal]
  - Confusional state [Recovering/Resolving]
  - Clostridium difficile infection [Recovering/Resolving]
